FAERS Safety Report 4818636-2 (Version None)
Quarter: 2005Q4

REPORT INFORMATION
  Report Type: 
  Country: None (occurrence: None)
  Receive Date: 20051101
  Receipt Date: 20051017
  Transmission Date: 20060501
  Serious: Yes (Congenital Anomaly)
  Sender: FDA-Public Use
  Company Number: B0398184A

PATIENT
  Sex: 0

DRUGS (2)
  1. IMITREX [Suspect]
     Dosage: TRANSPLACENTARY
     Route: 064
  2. AMERGE [Suspect]
     Dosage: TRANSPLACENTARY
     Route: 064

REACTIONS (2)
  - CONGENITAL ANOMALY [None]
  - DRUG EXPOSURE DURING PREGNANCY [None]
